FAERS Safety Report 6665485-9 (Version None)
Quarter: 2010Q2

REPORT INFORMATION
  Report Type: 
  Country: None (occurrence: None)
  Receive Date: 20100402
  Receipt Date: 20100319
  Transmission Date: 20101027
  Serious: Yes (Hospitalization)
  Sender: FDA-Public Use
  Company Number: IE-RB-016996-09

PATIENT
  Age: 18 Year
  Sex: Male

DRUGS (3)
  1. SUBUTEX [Suspect]
     Dosage: DOSING DETAILS UNKNOWN
     Route: 065
  2. SUBOXONE [Suspect]
     Dosage: DAILY DOSE 8 MG, FREQUENCY UNKNOWN
     Route: 060
     Dates: start: 20080826, end: 20080902
  3. EPILIM [Concomitant]
     Indication: DRUG USE FOR UNKNOWN INDICATION
     Dosage: DOSING INFORMATION UNKNOWN.
     Route: 065

REACTIONS (1)
  - EPILEPSY [None]
